FAERS Safety Report 11987763 (Version 4)
Quarter: 2016Q3

REPORT INFORMATION
  Report Type: Spontaneous
  Country: GB (occurrence: GB)
  Receive Date: 20160202
  Receipt Date: 20160808
  Transmission Date: 20161109
  Serious: Yes (Other)
  Sender: FDA-Public Use
  Company Number: GB-ROCHE-1649192

PATIENT
  Sex: Female

DRUGS (3)
  1. TAMOXIFEN [Concomitant]
     Active Substance: TAMOXIFEN
  2. HERCEPTIN [Suspect]
     Active Substance: TRASTUZUMAB
     Indication: PRODUCT USED FOR UNKNOWN INDICATION
     Dosage: CYCLE 3, CYCLE 5
     Route: 058
  3. RAMIPRIL. [Concomitant]
     Active Substance: RAMIPRIL

REACTIONS (15)
  - Fatigue [Unknown]
  - Insomnia [Unknown]
  - Pain [Unknown]
  - Asthenia [Unknown]
  - Wound secretion [Not Recovered/Not Resolved]
  - Basal cell carcinoma [Unknown]
  - Pain in extremity [Unknown]
  - Diarrhoea [Unknown]
  - Constipation [Unknown]
  - Lacrimation increased [Unknown]
  - Rheumatoid arthritis [Unknown]
  - Ill-defined disorder [Unknown]
  - Onychoclasis [Unknown]
  - Discomfort [Unknown]
  - Wound haemorrhage [Not Recovered/Not Resolved]
